FAERS Safety Report 12576570 (Version 2)
Quarter: 2016Q3

REPORT INFORMATION
  Report Type: Spontaneous
  Country: US (occurrence: US)
  Receive Date: 20160720
  Receipt Date: 20160802
  Transmission Date: 20161109
  Serious: Yes (Hospitalization)
  Sender: FDA-Public Use
  Company Number: US-OTSUKA-2016_012461

PATIENT
  Sex: Female

DRUGS (3)
  1. SERTRALINE [Concomitant]
     Active Substance: SERTRALINE HYDROCHLORIDE
     Indication: PRODUCT USED FOR UNKNOWN INDICATION
     Dosage: 180 MG, QD
     Route: 048
  2. REXULTI [Suspect]
     Active Substance: BREXPIPRAZOLE
     Indication: PRODUCT USED FOR UNKNOWN INDICATION
     Dosage: 1 MG, QD
     Route: 048
     Dates: start: 2016
  3. LAMITOL [Concomitant]
     Active Substance: LABETALOL HYDROCHLORIDE
     Indication: PRODUCT USED FOR UNKNOWN INDICATION
     Dosage: 25 MG, BID
     Route: 065

REACTIONS (3)
  - Hypotonia [Unknown]
  - Overdose [Unknown]
  - Drug administered to patient of inappropriate age [Unknown]

NARRATIVE: CASE EVENT DATE: 2016
